FAERS Safety Report 4606087-5 (Version None)
Quarter: 2005Q1

REPORT INFORMATION
  Report Type: 
  Country: None (occurrence: None)
  Receive Date: 20050309
  Receipt Date: 20050217
  Transmission Date: 20050727
  Serious: Yes (Hospitalization)
  Sender: FDA-Public Use
  Company Number: USA050291092

PATIENT
  Age: 81 Year
  Sex: Female

DRUGS (4)
  1. CYMBALTA [Suspect]
     Indication: NEUROPATHIC PAIN
     Dosage: 30 MG
  2. HYDROCHLOROTHIAZIDE W/VALSARTAN [Concomitant]
  3. CELEBREX [Concomitant]
  4. NEURONTIN [Concomitant]

REACTIONS (1)
  - HYPONATRAEMIA [None]
